FAERS Safety Report 9120485 (Version 2)
Quarter: 2013Q3

REPORT INFORMATION
  Report Type: Report from Study
  Country: US (occurrence: US)
  Receive Date: 20130226
  Receipt Date: 20130719
  Transmission Date: 20140515
  Serious: Yes (Death, Hospitalization)
  Sender: FDA-Public Use
  Company Number: US-US-EMD SERONO, INC.-7195100

PATIENT
  Age: 67 Year
  Sex: Female

DRUGS (3)
  1. REBIF [Suspect]
     Indication: MULTIPLE SCLEROSIS
     Route: 058
     Dates: start: 20050425, end: 20101108
  2. REBIF [Suspect]
     Route: 058
     Dates: start: 20110310
  3. ASPIRIN [Concomitant]
     Indication: PROPHYLAXIS
     Dates: start: 2008

REACTIONS (4)
  - Gastrointestinal infection [Fatal]
  - Oesophageal ulcer [Recovered/Resolved]
  - Diverticulitis [Recovered/Resolved]
  - Blood glucose decreased [Recovered/Resolved]
